FAERS Safety Report 21443678 (Version 1)
Quarter: 2022Q4

REPORT INFORMATION
  Report Type: Spontaneous
  Country: CN (occurrence: CN)
  Receive Date: 20221012
  Receipt Date: 20221012
  Transmission Date: 20230112
  Serious: Yes (Other)
  Sender: FDA-Public Use
  Company Number: CN-SUN PHARMACEUTICAL INDUSTRIES LTD-2022R1-358183

PATIENT
  Age: 38 Year
  Sex: Female

DRUGS (4)
  1. METHIMAZOLE [Suspect]
     Active Substance: METHIMAZOLE
     Indication: Thyroiditis subacute
     Dosage: 5 MILLIGRAM, DAILY
     Route: 065
     Dates: start: 20210724
  2. METHIMAZOLE [Suspect]
     Active Substance: METHIMAZOLE
     Indication: Basedow^s disease
  3. DIETARY SUPPLEMENT [Suspect]
     Active Substance: DIETARY SUPPLEMENT
     Indication: Thyroiditis subacute
     Dosage: 100 MICROGRAM/12 H
     Route: 065
     Dates: start: 20210724
  4. DIETARY SUPPLEMENT [Suspect]
     Active Substance: DIETARY SUPPLEMENT
     Indication: Basedow^s disease

REACTIONS (2)
  - Therapy non-responder [Unknown]
  - Palpitations [Unknown]
